FAERS Safety Report 5417474-X (Version None)
Quarter: 2007Q3

REPORT INFORMATION
  Report Type: 
  Country: None (occurrence: None)
  Receive Date: 20070816
  Receipt Date: 20070806
  Transmission Date: 20080115
  Serious: Yes (Other)
  Sender: FDA-Public Use
  Company Number: GB-ABBOTT-07P-167-0377160-00

PATIENT
  Age: 14 Year
  Sex: Male

DRUGS (1)
  1. ERYTHROMYCIN [Suspect]
     Indication: TOOTH INFECTION
     Route: 048
     Dates: start: 20070804

REACTIONS (1)
  - CHEST PAIN [None]
